FAERS Safety Report 9679057 (Version 2)
Quarter: 2013Q4

REPORT INFORMATION
  Report Type: Spontaneous
  Country: US (occurrence: US)
  Receive Date: 20131108
  Receipt Date: 20131108
  Transmission Date: 20140711
  Serious: Yes (Other)
  Sender: FDA-Public Use
  Company Number: US-TAKEDA-TPA2013A07422

PATIENT
  Sex: 0

DRUGS (7)
  1. ACTOS [Suspect]
     Indication: TYPE 2 DIABETES MELLITUS
     Dosage: 45 MG, QD
     Dates: start: 20101018, end: 20120313
  2. METFORMIN [Concomitant]
     Dosage: UNK
     Dates: start: 2003
  3. AVANDIA [Concomitant]
     Dosage: UNK
     Dates: start: 2005, end: 2007
  4. AMARYL [Concomitant]
     Dosage: UNK
     Dates: start: 2012
  5. JANUVIA [Concomitant]
     Dosage: UNK
     Dates: start: 2011
  6. AVANDAMET [Concomitant]
     Dosage: UNK
     Dates: start: 2004
  7. LINAGLIPTIN [Concomitant]
     Dosage: UNK
     Dates: start: 2012

REACTIONS (4)
  - Blood urine present [Unknown]
  - Cystitis [Unknown]
  - Metastases to lung [Unknown]
  - Metastatic carcinoma of the bladder [Unknown]
